FAERS Safety Report 4859815-8 (Version None)
Quarter: 2005Q4

REPORT INFORMATION
  Report Type: 
  Country: None (occurrence: None)
  Receive Date: 20051219
  Receipt Date: 20051118
  Transmission Date: 20060501
  Serious: Yes (Hospitalization)
  Sender: FDA-Public Use
  Company Number: JP-JPN-A20052826

PATIENT
  Age: 80 Year
  Sex: Male
  Weight: 56 kg

DRUGS (13)
  1. PAXIL [Suspect]
     Indication: DEPRESSION
     Dosage: 20MG PER DAY
     Route: 048
     Dates: start: 20050524, end: 20051025
  2. EUGLUCON [Suspect]
     Indication: DIABETES MELLITUS
     Dosage: 2.5MG TWICE PER DAY
     Route: 048
     Dates: start: 20050517
  3. AMLODIPINE BESYLATE [Concomitant]
     Indication: HYPERTENSION
     Dosage: 5MG PER DAY
     Route: 048
     Dates: start: 20050117
  4. PRERAN [Concomitant]
     Indication: HYPERTENSION
     Dosage: 1MG PER DAY
     Route: 048
     Dates: start: 20050117
  5. OLMETEC [Concomitant]
     Indication: HYPERTENSION
     Dosage: 20MG PER DAY
     Route: 048
     Dates: start: 20050117
  6. FLUITRAN [Concomitant]
     Indication: HYPERTENSION
     Dosage: 1MG PER DAY
     Route: 048
     Dates: start: 20050117
  7. ASPIRIN [Concomitant]
     Indication: ATRIAL FIBRILLATION
     Dosage: 100MG PER DAY
     Route: 048
     Dates: start: 20050117
  8. DIGOSIN [Concomitant]
     Indication: CARDIAC FAILURE
     Dosage: .25MG PER DAY
     Route: 048
  9. DEPAS [Concomitant]
     Indication: DEPRESSION
     Dosage: 1MG PER DAY
     Route: 048
  10. GLUCOBAY [Concomitant]
     Indication: DIABETES MELLITUS
     Dosage: 150MG PER DAY
     Route: 048
     Dates: start: 20050117
  11. METFORMIN HCL [Concomitant]
     Indication: DIABETES MELLITUS
     Dosage: 750MG PER DAY
     Route: 048
     Dates: start: 20050517
  12. CERCINE [Concomitant]
     Indication: DEPRESSION
     Dosage: 4MG PER DAY
     Route: 048
     Dates: start: 20050524
  13. SAIKO-KA-RYUKOTSU-BORELTO [Concomitant]
     Dosage: 7.5MG PER DAY
     Route: 048
     Dates: start: 20050524

REACTIONS (3)
  - HYPOGLYCAEMIA [None]
  - LOSS OF CONSCIOUSNESS [None]
  - NAUSEA [None]
